FAERS Safety Report 9773133 (Version 2)
Quarter: 2014Q3

REPORT INFORMATION
  Report Type: Spontaneous
  Country: US (occurrence: None)
  Receive Date: 20131217
  Receipt Date: 20140805
  Transmission Date: 20150326
  Serious: Yes (Hospitalization, Other)
  Sender: FDA-Public Use
  Company Number: AUR-APL-2013-10536

PATIENT
  Age: 25 Year
  Sex: Female

DRUGS (2)
  1. LEVETIRACETAM TABLETS 250 MG (LEVETIRACETAM) [Suspect]
     Active Substance: LEVETIRACETAM
     Indication: CONVULSION
  2. LEVETIRACETAM TABLETS 250 MG (LEVETIRACETAM) [Suspect]
     Active Substance: LEVETIRACETAM
     Indication: EPILEPSY

REACTIONS (11)
  - Decreased appetite [None]
  - Convulsion [None]
  - Blood bilirubin increased [None]
  - Pancreatitis acute [None]
  - Hypotension [None]
  - Abdominal discomfort [None]
  - No therapeutic response [None]
  - Diarrhoea [None]
  - Liver disorder [None]
  - Transaminases increased [None]
  - Blood alkaline phosphatase increased [None]
